FAERS Safety Report 6253644-9 (Version None)
Quarter: 2009Q3

REPORT INFORMATION
  Report Type: 
  Country: None (occurrence: None)
  Receive Date: 20090701
  Receipt Date: 20090616
  Transmission Date: 20100115
  Serious: Yes (Other)
  Sender: FDA-Public Use
  Company Number: DE-GENENTECH-285818

PATIENT
  Sex: Female

DRUGS (5)
  1. LUCENTIS [Suspect]
     Indication: MACULAR DEGENERATION
     Dosage: UNK
     Route: 031
     Dates: start: 20070924
  2. LUCENTIS [Suspect]
     Dosage: UNK
     Route: 031
     Dates: start: 20071129
  3. LUCENTIS [Suspect]
     Dosage: UNK
     Route: 031
     Dates: start: 20080414
  4. LUCENTIS [Suspect]
     Dosage: UNK
     Route: 031
     Dates: start: 20080630
  5. INSULIN [Concomitant]
     Indication: DRUG USE FOR UNKNOWN INDICATION

REACTIONS (2)
  - DETACHMENT OF RETINAL PIGMENT EPITHELIUM [None]
  - MACULOPATHY [None]
